FAERS Safety Report 15877303 (Version 2)
Quarter: 2019Q2

REPORT INFORMATION
  Report Type: Spontaneous
  Country: US (occurrence: US)
  Receive Date: 20190128
  Receipt Date: 20190501
  Transmission Date: 20190711
  Serious: Yes (Other)
  Sender: FDA-Public Use
  Company Number: US-SA-2019SA019735

PATIENT
  Sex: Female

DRUGS (15)
  1. HYDROCODONE [Concomitant]
     Active Substance: HYDROCODONE
  2. AUBAGIO [Suspect]
     Active Substance: TERIFLUNOMIDE
     Dosage: 14 MG, QD
     Route: 048
     Dates: start: 20180109
  3. FLUTICASONE. [Concomitant]
     Active Substance: FLUTICASONE
  4. PRAVASTATIN. [Concomitant]
     Active Substance: PRAVASTATIN
  5. CALCIUM [Concomitant]
     Active Substance: CALCIUM
  6. NORTRIPTYLIN [Concomitant]
     Active Substance: NORTRIPTYLINE
  7. ROPINIROLE. [Concomitant]
     Active Substance: ROPINIROLE
  8. AUBAGIO [Suspect]
     Active Substance: TERIFLUNOMIDE
     Dosage: 1 DF, BID
     Route: 048
  9. BIOTIN [Concomitant]
     Active Substance: BIOTIN
  10. PRILOSEC [Concomitant]
     Active Substance: OMEPRAZOLE MAGNESIUM
  11. VITAMIN B1 [Concomitant]
     Active Substance: THIAMINE HYDROCHLORIDE
  12. MONTELUKAST [Concomitant]
     Active Substance: MONTELUKAST SODIUM
  13. VITAMIN D NOS [Concomitant]
     Active Substance: VITAMIN D NOS
  14. AMANTADINE. [Concomitant]
     Active Substance: AMANTADINE HYDROCHLORIDE
  15. PRAMIPEXOLE. [Concomitant]
     Active Substance: PRAMIPEXOLE

REACTIONS (11)
  - Visual impairment [Not Recovered/Not Resolved]
  - Weight decreased [Not Recovered/Not Resolved]
  - Paraesthesia [Not Recovered/Not Resolved]
  - Multiple sclerosis relapse [Not Recovered/Not Resolved]
  - Fatigue [Not Recovered/Not Resolved]
  - Decreased appetite [Not Recovered/Not Resolved]
  - Pain [Not Recovered/Not Resolved]
  - Hypoaesthesia [Not Recovered/Not Resolved]
  - Headache [Not Recovered/Not Resolved]
  - Fall [Not Recovered/Not Resolved]
  - Extra dose administered [Not Recovered/Not Resolved]

NARRATIVE: CASE EVENT DATE: 2019
